FAERS Safety Report 5983348-9 (Version None)
Quarter: 2008Q4

REPORT INFORMATION
  Report Type: 
  Country: None (occurrence: None)
  Receive Date: 20081208
  Receipt Date: 20081106
  Transmission Date: 20090506
  Serious: No
  Sender: FDA-Public Use
  Company Number: US-BAYER-200814327BCC

PATIENT
  Age: 64 Year
  Sex: Female
  Weight: 95 kg

DRUGS (7)
  1. ALEVE [Suspect]
     Indication: ARTHRITIS
     Dosage: TOTAL DAILY DOSE: 880 MG  UNIT DOSE: 220 MG
     Dates: start: 20071101, end: 20080901
  2. ALEVE [Suspect]
     Indication: ARTHRITIS
     Dosage: TOTAL DAILY DOSE: 880 MG  UNIT DOSE: 220 MG
     Route: 048
     Dates: start: 20081031
  3. LIPITOR [Concomitant]
  4. TOPROL-XL [Concomitant]
  5. TRIAMTERENE AND HYDROCHLOROTHIAZIDE [Concomitant]
  6. TYLENOL (CAPLET) [Concomitant]
  7. VIVELLE [Concomitant]
     Route: 062

REACTIONS (1)
  - OEDEMA PERIPHERAL [None]
